FAERS Safety Report 8784791 (Version 2)
Quarter: 2012Q4

REPORT INFORMATION
  Report Type: 
  Country: US (occurrence: US)
  Receive Date: 20120914
  Receipt Date: 20121009
  Transmission Date: 20130627
  Serious: Yes (Other)
  Sender: FDA-Public Use
  Company Number: US-PFIZER INC-2012226328

PATIENT
  Age: 78 Year
  Sex: Male
  Weight: 90.7 kg

DRUGS (6)
  1. LYRICA [Suspect]
     Indication: POST HERPETIC NEURALGIA
     Dosage: 50 mg, 1x/day
     Route: 048
     Dates: start: 20120831, end: 2012
  2. LYRICA [Suspect]
     Dosage: 50 mg, 2x/day
     Route: 048
     Dates: start: 2012, end: 2012
  3. LYRICA [Suspect]
     Dosage: 50 mg, 3x/day
     Route: 048
     Dates: start: 2012, end: 2012
  4. LYRICA [Suspect]
     Dosage: 50 mg, 4x/day
     Route: 048
     Dates: start: 2012, end: 2012
  5. SIMVASTATIN [Concomitant]
     Indication: BLOOD CHOLESTEROL ABNORMAL
     Dosage: 40 mg, 1x/day
     Route: 048
  6. LEVOXYL [Concomitant]
     Indication: THYROID DISORDER
     Dosage: 137 ug, 1x/day
     Route: 048

REACTIONS (2)
  - Infected bites [Recovered/Resolved]
  - Impaired work ability [Recovered/Resolved]
